FAERS Safety Report 16358409 (Version 1)
Quarter: 2019Q2

REPORT INFORMATION
  Report Type: Spontaneous
  Country: US (occurrence: US)
  Receive Date: 20190418
  Receipt Date: 20190418
  Transmission Date: 20190711
  Serious: No
  Sender: FDA-Public Use
  Company Number: None

PATIENT
  Age: 63 Year
  Sex: Male

DRUGS (1)
  1. COSENTYX [Suspect]
     Active Substance: SECUKINUMAB
     Indication: ANKYLOSING SPONDYLITIS
     Dosage: INJECT 150MG (1 PEN) SUBCUTANEOUSLY  EVERY 2 WEEKS   AS DIRECTED
     Route: 058
     Dates: start: 201802

REACTIONS (4)
  - Muscular weakness [None]
  - Drug ineffective [None]
  - Muscle spasms [None]
  - Muscle spasticity [None]
